FAERS Safety Report 7950704-9 (Version None)
Quarter: 2011Q4

REPORT INFORMATION
  Report Type: 
  Country: None (occurrence: None)
  Receive Date: 20111201
  Receipt Date: 20111121
  Transmission Date: 20120403
  Serious: Yes (Hospitalization, Other)
  Sender: FDA-Public Use
  Company Number: US-BAYER-2011-087441

PATIENT
  Age: 29 Year
  Sex: Female
  Weight: 92.971 kg

DRUGS (2)
  1. YAZ [Suspect]
     Indication: POLYCYSTIC OVARIES
     Dosage: UNK
     Dates: start: 20090412, end: 20090921
  2. EXCEDRIN [ACETYLSALICYLIC ACID,CAFFEINE,PARACETAMOL,SALICYLAMIDE] [Concomitant]

REACTIONS (9)
  - DYSPNOEA [None]
  - PULMONARY EMBOLISM [None]
  - CHEST PAIN [None]
  - ANXIETY [None]
  - PULMONARY INFARCTION [None]
  - INJURY [None]
  - WHEEZING [None]
  - FEAR OF DISEASE [None]
  - ASTHENIA [None]
